FAERS Safety Report 12326935 (Version 1)
Quarter: 2016Q2

REPORT INFORMATION
  Report Type: Spontaneous
  Country: US (occurrence: US)
  Receive Date: 20160503
  Receipt Date: 20160503
  Transmission Date: 20160815
  Serious: No
  Sender: FDA-Public Use
  Company Number: US-PFIZER INC-2016234022

PATIENT
  Age: 56 Year
  Sex: Female

DRUGS (5)
  1. HYDROXYZINE HCL [Suspect]
     Active Substance: HYDROXYZINE HYDROCHLORIDE
  2. FIORICET [Suspect]
     Active Substance: ACETAMINOPHEN\BUTALBITAL\CAFFEINE
  3. TEMAZEPAM. [Suspect]
     Active Substance: TEMAZEPAM
  4. NEURONTIN [Suspect]
     Active Substance: GABAPENTIN
  5. MELOXICAM. [Suspect]
     Active Substance: MELOXICAM

REACTIONS (1)
  - Drug hypersensitivity [Unknown]
